FAERS Safety Report 18137658 (Version 6)
Quarter: 2021Q3

REPORT INFORMATION
  Report Type: Spontaneous
  Country: FR (occurrence: FR)
  Receive Date: 20200812
  Receipt Date: 20210824
  Transmission Date: 20211014
  Serious: Yes (Hospitalization, Other)
  Sender: FDA-Public Use
  Company Number: FR-TEVA-2020-FR-1814259

PATIENT
  Age: 63 Year
  Sex: Female
  Weight: 82 kg

DRUGS (13)
  1. FLUOXETINE [Suspect]
     Active Substance: FLUOXETINE HYDROCHLORIDE
     Dosage: 40 MILLIGRAM DAILY;
     Route: 065
  2. ALPRAZOLAM. [Suspect]
     Active Substance: ALPRAZOLAM
     Dosage: 3 DOSAGE FORMS DAILY; IN THE MORNING, AT MIDDAY AND IN THE EVENING
  3. THERALENE [Concomitant]
     Active Substance: TRIMEPRAZINE
     Indication: INSOMNIA
  4. LANSOPRAZOLE. [Suspect]
     Active Substance: LANSOPRAZOLE
     Dosage: 2 DOSAGE FORMS DAILY; IN THE MORNING AND IN THE EVENING
  5. APIXABAN [Concomitant]
     Active Substance: APIXABAN
     Dosage: 2 DOSAGE FORMS DAILY; IN THE MORNING AND IN THE EVENING
  6. LEVOTHYROXINE. [Concomitant]
     Active Substance: LEVOTHYROXINE
     Dosage: 1 DOSAGE FORMS DAILY; IN THE MORNING
  7. MIANSERINE [Suspect]
     Active Substance: MIANSERIN HYDROCHLORIDE
     Dosage: 3 DOSAGE FORMS DAILY; IN THE EVENING
     Route: 065
     Dates: end: 2020
  8. AMLODIPINE [Suspect]
     Active Substance: AMLODIPINE BESYLATE
     Dosage: 1 DOSAGE FORMS DAILY; IN THE MORNING
  9. QUETIAPINE. [Suspect]
     Active Substance: QUETIAPINE
     Dosage: INCREASED PROGRESSIVELY TO 400 MG
     Route: 065
  10. ACEBUTOLOL [Suspect]
     Active Substance: ACEBUTOLOL
     Dosage: .5 DOSAGE FORMS DAILY; IN THE MORNING
  11. RISPERDAL [Concomitant]
     Active Substance: RISPERIDONE
     Dates: end: 2020
  12. LEVOTHYROXINE. [Concomitant]
     Active Substance: LEVOTHYROXINE
  13. DULOXETINE. [Suspect]
     Active Substance: DULOXETINE
     Dosage: 2 DOSAGE FORMS DAILY; IN THE MORNING
     Route: 065

REACTIONS (17)
  - Anxiety [Recovering/Resolving]
  - Regurgitation [Recovered/Resolved]
  - Constipation [Recovered/Resolved]
  - Drug ineffective [Unknown]
  - Suicidal ideation [Recovered/Resolved]
  - Chest pain [Recovering/Resolving]
  - Oesophageal food impaction [Recovered/Resolved]
  - Oesophageal achalasia [Unknown]
  - Abdominal distension [Recovered/Resolved]
  - Micturition urgency [Not Recovered/Not Resolved]
  - Nausea [Recovered/Resolved]
  - Dysuria [Recovered/Resolved]
  - Morbid thoughts [Recovered/Resolved]
  - Dysphagia [Recovering/Resolving]
  - Oesophageal spasm [Unknown]
  - Abdominal pain [Recovered/Resolved]
  - Pollakiuria [Not Recovered/Not Resolved]

NARRATIVE: CASE EVENT DATE: 2020
